FAERS Safety Report 6428747-6 (Version None)
Quarter: 2009Q4

REPORT INFORMATION
  Report Type: 
  Country: None (occurrence: None)
  Receive Date: 20091105
  Receipt Date: 20091019
  Transmission Date: 20100525
  Serious: Yes (Other)
  Sender: FDA-Public Use
  Company Number: BR-AVENTIS-200922158GDDC

PATIENT

DRUGS (1)
  1. TAXOTERE [Suspect]
     Indication: DRUG USE FOR UNKNOWN INDICATION
     Route: 042

REACTIONS (6)
  - BRONCHOSPASM [None]
  - DYSPNOEA [None]
  - FLUSHING [None]
  - HYPERSENSITIVITY [None]
  - HYPOTHERMIA [None]
  - RESPIRATORY FAILURE [None]
